FAERS Safety Report 8059230-2 (Version None)
Quarter: 2012Q1

REPORT INFORMATION
  Report Type: 
  Country: None (occurrence: None)
  Receive Date: 20120112
  Receipt Date: 20120103
  Transmission Date: 20120608
  Serious: Yes (Other)
  Sender: FDA-Public Use
  Company Number: 1000026766

PATIENT
  Age: 18 Year
  Sex: Female

DRUGS (1)
  1. CITALOPRAM HYDROBROMIDE [Suspect]
     Indication: DEPRESSION
     Dosage: 20 MG (20 MG, 1 IN 1 D), ORAL
     Route: 048
     Dates: start: 20111124, end: 20111201

REACTIONS (9)
  - MOOD SWINGS [None]
  - DRUG INEFFECTIVE [None]
  - PRODUCT SUBSTITUTION ISSUE [None]
  - ANXIETY [None]
  - INSOMNIA [None]
  - DYSARTHRIA [None]
  - HEADACHE [None]
  - DEPRESSION [None]
  - PARANOIA [None]
